FAERS Safety Report 4960125-9 (Version None)
Quarter: 2006Q1

REPORT INFORMATION
  Report Type: 
  Country: None (occurrence: None)
  Receive Date: 20060328
  Receipt Date: 20060317
  Transmission Date: 20060701
  Serious: Yes (Other)
  Sender: FDA-Public Use
  Company Number: 2006038120

PATIENT
  Age: 77 Year
  Sex: Female
  Weight: 73.4827 kg

DRUGS (6)
  1. LIPITOR [Suspect]
     Indication: ILL-DEFINED DISORDER
  2. AMITRIPTYLINE (AMITRIPTYLINE) [Concomitant]
  3. STOOL SOFTENER (DOCUATE SODIUM) [Concomitant]
  4. ASPIRIN [Concomitant]
  5. LEVOXYL [Concomitant]
  6. LAXATIVES (LAXATIVES) [Concomitant]

REACTIONS (3)
  - MUSCLE SPASMS [None]
  - THYROID FUNCTION TEST ABNORMAL [None]
  - UTERINE PROLAPSE [None]
